FAERS Safety Report 14028046 (Version 1)
Quarter: 2017Q3

REPORT INFORMATION
  Report Type: Spontaneous
  Country: US (occurrence: None)
  Receive Date: 20170930
  Receipt Date: 20170930
  Transmission Date: 20171128
  Serious: Yes (Death, Hospitalization)
  Sender: FDA-Public Use
  Company Number: None

PATIENT
  Age: 8 Year
  Sex: Male
  Weight: 30.4 kg

DRUGS (4)
  1. MERCAPTOPURINE. [Suspect]
     Active Substance: MERCAPTOPURINE
     Dates: end: 20170917
  2. METHOTREXATE. [Suspect]
     Active Substance: METHOTREXATE
     Dates: end: 20170917
  3. VINCRISTINE SULFATE. [Suspect]
     Active Substance: VINCRISTINE SULFATE
     Dates: end: 20170913
  4. DEXAMETHASONE. [Suspect]
     Active Substance: DEXAMETHASONE
     Dates: end: 20170917

REACTIONS (13)
  - Epistaxis [None]
  - Dizziness [None]
  - Cardio-respiratory arrest [None]
  - Rectal haemorrhage [None]
  - Mouth haemorrhage [None]
  - Acidosis [None]
  - Cardiac arrest [None]
  - Shock [None]
  - Bradycardia [None]
  - Hepatic failure [None]
  - Fall [None]
  - Haematochezia [None]
  - Acute hepatic failure [None]

NARRATIVE: CASE EVENT DATE: 20170919
